FAERS Safety Report 9275942 (Version 3)
Quarter: 2014Q3

REPORT INFORMATION
  Report Type: Spontaneous
  Country: US (occurrence: US)
  Receive Date: 20130507
  Receipt Date: 20140827
  Transmission Date: 20150326
  Serious: Yes (Hospitalization, Disabling, Other)
  Sender: FDA-Public Use
  Company Number: US-009507513-1305USA001721

PATIENT
  Sex: Female
  Weight: 74.38 kg

DRUGS (1)
  1. NUVARING [Suspect]
     Active Substance: ETHINYL ESTRADIOL\ETONOGESTREL
     Indication: CONTRACEPTION
     Dosage: UNK
     Route: 067
     Dates: start: 200803, end: 20110502

REACTIONS (14)
  - General physical condition abnormal [Unknown]
  - Intracranial hypotension [Unknown]
  - Gliosis [Unknown]
  - Dyspnoea [Unknown]
  - Dehydration [Unknown]
  - Abortion spontaneous [Recovered/Resolved]
  - Spinal osteoarthritis [Unknown]
  - Unintended pregnancy [Recovered/Resolved]
  - Sinusitis [Unknown]
  - General physical condition abnormal [Unknown]
  - Somnolence [Unknown]
  - Paraesthesia [Unknown]
  - Migraine [Unknown]
  - Cerebral venous thrombosis [Recovering/Resolving]

NARRATIVE: CASE EVENT DATE: 2009
